FAERS Safety Report 9517055 (Version 4)
Quarter: 2013Q4

REPORT INFORMATION
  Report Type: Spontaneous
  Country: US (occurrence: US)
  Receive Date: 20130911
  Receipt Date: 20131210
  Transmission Date: 20140711
  Serious: Yes (Hospitalization, Other)
  Sender: FDA-Public Use
  Company Number: US-PFIZER INC-2013257351

PATIENT
  Age: 79 Year
  Sex: Female

DRUGS (21)
  1. SUTENT [Suspect]
     Indication: RENAL CANCER METASTATIC
     Dosage: 50 MG, UNK
     Route: 048
     Dates: start: 20130821, end: 20130913
  2. ACETYLSALICYLIC ACID [Concomitant]
     Dosage: 81 MG, DAILY
     Route: 048
  3. CALCIUM WITH VITAMIN D [Concomitant]
     Dosage: UNK
  4. CARVEDILOL [Concomitant]
     Dosage: 6.25 MG, 2X/DAY
     Route: 048
  5. LOVASTATIN [Concomitant]
     Dosage: 20 MG, 2X/DAY
     Route: 048
  6. OMEGA 3 [Concomitant]
     Dosage: 1000 MG, DAILY
     Route: 048
  7. TRADJENTA [Concomitant]
     Dosage: 5 MG, DAILY
     Route: 048
  8. VERAPAMIL HYDROCHLORIDE [Concomitant]
     Dosage: 120 MG, 3X/DAY
     Route: 048
     Dates: start: 20120823
  9. VITAMIN D3 [Concomitant]
     Dosage: 1000 IU, DAILY
     Route: 048
  10. AMITRIPTYLINE HYDROCHLORIDE [Concomitant]
     Dosage: 25 MG, 1X/DAY (AT BED TIME)
     Route: 048
  11. CO-Q-10 [Concomitant]
     Dosage: 100 MG, DAILY
     Route: 048
  12. FLUTICASONE PROPIONATE [Concomitant]
     Dosage: 50 MCG/ACT- PLACE 1 PUFF(S) NASAL DALLY
     Route: 045
     Dates: start: 20121115
  13. GLUCOSAMINE CHONDR COMPLEX [Concomitant]
     Dosage: 1 (500-400 MG), DAILY
     Route: 048
  14. NOVOLOG [Concomitant]
     Dosage: UNK, PRN
     Route: 058
  15. PROTONIX [Concomitant]
     Dosage: 40 MG, 2X/DAY
     Route: 048
     Dates: start: 20130919
  16. VITAMIN B COMPLEX [Concomitant]
     Dosage: 1 DF, DAILY
     Route: 048
  17. ZOFRAN [Concomitant]
     Dosage: 8 MG, AS NEEDED (Q 8 HOURS)
     Route: 048
     Dates: start: 20130904
  18. DEXAMETHASONE [Concomitant]
     Dosage: UNK
     Dates: start: 20131024
  19. LEVOTHROID [Concomitant]
     Dosage: UNK
     Dates: start: 20131024
  20. LOSARTAN POTASSIUM [Concomitant]
     Dosage: UNK
     Dates: start: 20130731
  21. SUCRALFATE [Concomitant]
     Dosage: UNK
     Dates: start: 20130926

REACTIONS (8)
  - Nausea [Recovered/Resolved]
  - Fatigue [Recovered/Resolved]
  - Vomiting [Recovered/Resolved]
  - Asthenia [Recovered/Resolved]
  - Malaise [Unknown]
  - Pancytopenia [Unknown]
  - Platelet count decreased [Recovering/Resolving]
  - Drug intolerance [Unknown]
